FAERS Safety Report 15238785 (Version 1)
Quarter: 2018Q3

REPORT INFORMATION
  Report Type: Spontaneous
  Country: US (occurrence: US)
  Receive Date: 20180710
  Receipt Date: 20180710
  Transmission Date: 20181010
  Serious: Yes (Death)
  Sender: FDA-Public Use
  Company Number: None

PATIENT
  Age: 50 Year
  Sex: Male

DRUGS (1)
  1. ATRIPLA [Suspect]
     Active Substance: EFAVIRENZ\EMTRICITABINE\TENOFOVIR DISOPROXIL FUMARATE
     Indication: IMMUNODEFICIENCY
     Dosage: ?          OTHER DOSE:600MG/200MG/300MG ;?
     Route: 048
     Dates: start: 20150205, end: 20180413

REACTIONS (1)
  - Death [None]

NARRATIVE: CASE EVENT DATE: 20180429
